FAERS Safety Report 5603942-4 (Version None)
Quarter: 2008Q1

REPORT INFORMATION
  Report Type: 
  Country: None (occurrence: None)
  Receive Date: 20080124
  Receipt Date: 20080124
  Transmission Date: 20080703
  Serious: Yes (Other)
  Sender: FDA-Public Use
  Company Number: None

PATIENT
  Sex: Male
  Weight: 89.1 kg

DRUGS (1)
  1. HEPARIN [Suspect]
     Indication: CARDIOPULMONARY BYPASS
     Dosage: 45,000 UNITS (BOLUS) PRN IV
     Route: 042
     Dates: start: 20080102, end: 20080114

REACTIONS (2)
  - COAGULATION TIME SHORTENED [None]
  - DRUG EFFECT DECREASED [None]
